FAERS Safety Report 9998987 (Version 1)
Quarter: 2014Q1

REPORT INFORMATION
  Report Type: Spontaneous
  Country: US (occurrence: US)
  Receive Date: 20140312
  Receipt Date: 20140312
  Transmission Date: 20141002
  Serious: Yes (Other)
  Sender: FDA-Public Use
  Company Number: US-ROCHE-1359939

PATIENT
  Age: 62 Year
  Sex: Female

DRUGS (3)
  1. LUCENTIS [Suspect]
     Indication: AGE-RELATED MACULAR DEGENERATION
     Route: 050
  2. VERTEPORFIN [Suspect]
     Indication: AGE-RELATED MACULAR DEGENERATION
     Route: 065
  3. EYLEA [Concomitant]
     Route: 050

REACTIONS (3)
  - Retinal disorder [Unknown]
  - Detachment of retinal pigment epithelium [Recovering/Resolving]
  - Retinal detachment [Recovered/Resolved]
